FAERS Safety Report 25303886 (Version 1)
Quarter: 2025Q2

REPORT INFORMATION
  Report Type: Spontaneous
  Country: GB (occurrence: GB)
  Receive Date: 20250513
  Receipt Date: 20250513
  Transmission Date: 20250717
  Serious: Yes (Hospitalization, Other)
  Sender: SANDOZ
  Company Number: None

PATIENT
  Age: 57 Year
  Sex: Female

DRUGS (1)
  1. CLARITHROMYCIN [Suspect]
     Active Substance: CLARITHROMYCIN
     Indication: Tooth infection
     Dosage: 1 DF, Q12H, 10 CLARITHROMYCIN 500MG TABLETS. TAKE ONE TABLET EVERY TWELVE HOURS
     Route: 065
     Dates: start: 20250506, end: 20250507

REACTIONS (4)
  - Paranoia [Recovering/Resolving]
  - Confusional state [Recovering/Resolving]
  - Hallucination [Recovered/Resolved]
  - Medication error [Unknown]

NARRATIVE: CASE EVENT DATE: 20250507
